FAERS Safety Report 8326304-8 (Version None)
Quarter: 2012Q2

REPORT INFORMATION
  Report Type: 
  Country: None (occurrence: None)
  Receive Date: 20120501
  Receipt Date: 20120425
  Transmission Date: 20120825
  Serious: Yes (Other)
  Sender: FDA-Public Use
  Company Number: US-TEVA-334610USA

PATIENT
  Sex: Female

DRUGS (1)
  1. COPAXONE [Suspect]
     Indication: MULTIPLE SCLEROSIS
     Dosage: 20 MILLIGRAM;
     Route: 058

REACTIONS (9)
  - DEMYELINATION [None]
  - ANTIPHOSPHOLIPID SYNDROME [None]
  - GUILLAIN-BARRE SYNDROME [None]
  - SJOGREN'S SYNDROME [None]
  - OPTIC NEURITIS [None]
  - FIBROMYALGIA [None]
  - TELANGIECTASIA [None]
  - DRUG INEFFECTIVE [None]
  - RAYNAUD'S PHENOMENON [None]
